FAERS Safety Report 6804182-3 (Version None)
Quarter: 2010Q2

REPORT INFORMATION
  Report Type: 
  Country: None (occurrence: None)
  Receive Date: 20100628
  Receipt Date: 20070108
  Transmission Date: 20101027
  Serious: No
  Sender: FDA-Public Use
  Company Number: US-PFIZER INC-2007003653

PATIENT
  Sex: Male
  Weight: 63.5 kg

DRUGS (2)
  1. SUTENT [Suspect]
     Indication: RENAL CELL CARCINOMA STAGE IV
     Dates: start: 20061226, end: 20070108
  2. IRON [Concomitant]

REACTIONS (2)
  - DECREASED APPETITE [None]
  - PAIN [None]
